FAERS Safety Report 12639248 (Version 1)
Quarter: 2016Q3

REPORT INFORMATION
  Report Type: Spontaneous
  Country: US (occurrence: US)
  Receive Date: 20160810
  Receipt Date: 20160810
  Transmission Date: 20161109
  Serious: No
  Sender: FDA-Public Use
  Company Number: US-ACTELION-A-US2016-140566

PATIENT
  Age: 6 Year
  Sex: Female

DRUGS (3)
  1. CIALIS [Concomitant]
     Active Substance: TADALAFIL
  2. NYSTATIN. [Concomitant]
     Active Substance: NYSTATIN
  3. TRACLEER [Suspect]
     Active Substance: BOSENTAN
     Indication: PULMONARY ARTERIAL HYPERTENSION
     Dosage: 31.25 MG, BID
     Route: 048
     Dates: start: 20141001

REACTIONS (1)
  - Candida infection [Unknown]
